FAERS Safety Report 13902093 (Version 1)
Quarter: 2017Q3

REPORT INFORMATION
  Report Type: Spontaneous
  Country: US (occurrence: US)
  Receive Date: 20170824
  Receipt Date: 20170824
  Transmission Date: 20171127
  Serious: No
  Sender: FDA-Public Use
  Company Number: US-ROCHE-1130027

PATIENT
  Sex: Female

DRUGS (5)
  1. TAXOTERE [Concomitant]
     Active Substance: DOCETAXEL
     Route: 065
  2. HERCEPTIN [Suspect]
     Active Substance: TRASTUZUMAB
     Indication: BREAST CANCER METASTATIC
     Dosage: LOADING DOAE
     Route: 065
     Dates: start: 19981021
  3. HERCEPTIN [Suspect]
     Active Substance: TRASTUZUMAB
     Dosage: MAINTENANCE DOSE
     Route: 065
  4. DECADRON [Concomitant]
     Active Substance: DEXAMETHASONE
  5. AMBIEN [Concomitant]
     Active Substance: ZOLPIDEM TARTRATE

REACTIONS (11)
  - Diarrhoea [Unknown]
  - Peripheral swelling [Unknown]
  - Listless [Unknown]
  - Erythema [Unknown]
  - Dysphagia [Unknown]
  - Arthralgia [Unknown]
  - Oral pain [Unknown]
  - Dyspnoea exertional [Unknown]
  - Alopecia [Unknown]
  - Lymphoedema [Unknown]
  - Fatigue [Unknown]
